FAERS Safety Report 17230560 (Version 4)
Quarter: 2020Q1

REPORT INFORMATION
  Report Type: Spontaneous
  Country: US (occurrence: US)
  Receive Date: 20200103
  Receipt Date: 20200218
  Transmission Date: 20200409
  Serious: No
  Sender: FDA-Public Use
  Company Number: US-SHIRE-US201945660

PATIENT
  Sex: Female
  Weight: 64.85 kg

DRUGS (6)
  1. CARBATROL [Suspect]
     Active Substance: CARBAMAZEPINE
     Indication: GENERALISED TONIC-CLONIC SEIZURE
     Dosage: UNK
     Route: 065
     Dates: start: 1989, end: 2006
  2. CARBATROL [Suspect]
     Active Substance: CARBAMAZEPINE
     Dosage: UNK
     Route: 065
     Dates: start: 2009
  3. CARBATROL [Suspect]
     Active Substance: CARBAMAZEPINE
     Dosage: UNK
     Route: 065
     Dates: start: 2012
  4. CARBATROL [Suspect]
     Active Substance: CARBAMAZEPINE
     Dosage: 100 MILLIGRAM
     Route: 065
  5. CARBATROL [Suspect]
     Active Substance: CARBAMAZEPINE
     Dosage: UNK
     Route: 065
     Dates: start: 20191231
  6. CARBATROL [Suspect]
     Active Substance: CARBAMAZEPINE
     Dosage: UNK
     Route: 065
     Dates: start: 2017

REACTIONS (5)
  - Vomiting [Recovered/Resolved]
  - Intentional product use issue [Not Recovered/Not Resolved]
  - Malaise [Not Recovered/Not Resolved]
  - Speech disorder [Unknown]
  - Epistaxis [Recovered/Resolved]
